FAERS Safety Report 9816963 (Version 3)
Quarter: 2014Q1

REPORT INFORMATION
  Report Type: Spontaneous
  Country: US (occurrence: US)
  Receive Date: 20140114
  Receipt Date: 20140218
  Transmission Date: 20141002
  Serious: Yes (Other)
  Sender: FDA-Public Use
  Company Number: US-GLAXOSMITHKLINE-A1056623A

PATIENT
  Age: 51 Year
  Sex: Female

DRUGS (1)
  1. ADVAIR HFA [Suspect]
     Indication: ASTHMA
     Route: 055
     Dates: start: 20100605

REACTIONS (4)
  - Progressive external ophthalmoplegia [Unknown]
  - Adverse drug reaction [Unknown]
  - Malaise [Unknown]
  - Fatigue [Unknown]
